FAERS Safety Report 14617735 (Version 1)
Quarter: 2018Q1

REPORT INFORMATION
  Report Type: Spontaneous
  Country: GB (occurrence: IT)
  Receive Date: 20180309
  Receipt Date: 20180309
  Transmission Date: 20180509
  Serious: Yes (Other)
  Sender: FDA-Public Use
  Company Number: IT-FRESENIUS KABI-FK201802421

PATIENT
  Age: 69 Year

DRUGS (4)
  1. RANITIDINE HYDROCHLORIDE. [Concomitant]
     Active Substance: RANITIDINE HYDROCHLORIDE
     Indication: PRODUCT USED FOR UNKNOWN INDICATION
     Route: 042
     Dates: start: 20180213, end: 20180213
  2. NAVOBAN [Concomitant]
     Active Substance: TROPISETRON HYDROCHLORIDE
     Indication: PRODUCT USED FOR UNKNOWN INDICATION
  3. BENTELAN [Concomitant]
     Active Substance: BETAMETHASONE SODIUM PHOSPHATE
     Indication: PRODUCT USED FOR UNKNOWN INDICATION
     Route: 042
  4. OXALIPLATIN 5MG/ML CONCENTRATE FOR SOLUTION FOR INFUSION [Suspect]
     Active Substance: OXALIPLATIN
     Indication: CHEMOTHERAPY SINGLE AGENT SYSTEMIC
     Route: 042
     Dates: start: 20180213, end: 20180213

REACTIONS (6)
  - Trismus [Recovered/Resolved]
  - Pruritus generalised [Recovered/Resolved]
  - Hypotension [Recovered/Resolved]
  - Dyspnoea [Recovered/Resolved]
  - Flushing [Recovered/Resolved]
  - Loss of consciousness [Recovered/Resolved]

NARRATIVE: CASE EVENT DATE: 20180213
